FAERS Safety Report 14174581 (Version 8)
Quarter: 2018Q3

REPORT INFORMATION
  Report Type: Spontaneous
  Country: CA (occurrence: CA)
  Receive Date: 20171109
  Receipt Date: 20180709
  Transmission Date: 20181010
  Serious: Yes (Other)
  Sender: FDA-Public Use
  Company Number: CA-CELLTRION INC.-2017CA015311

PATIENT

DRUGS (16)
  1. INFLECTRA [Suspect]
     Active Substance: INFLIXIMAB-DYYB
     Dosage: 700 MG  THEN EVERY 8 WEEKS
     Route: 042
     Dates: start: 20180221
  2. LISINOPRIL HCT                     /01613901/ [Concomitant]
     Active Substance: HYDROCHLOROTHIAZIDE\LISINOPRIL
     Dosage: 20/25 MG, DAILY
     Route: 065
  3. ZANTAC [Concomitant]
     Active Substance: RANITIDINE HYDROCHLORIDE
     Dosage: 300 MG, DAILY
     Route: 065
  4. TRAMACET [Concomitant]
     Active Substance: ACETAMINOPHEN\TRAMADOL
     Dosage: 375/325 MG, AS NEEDED
     Route: 065
     Dates: start: 2017
  5. INFLECTRA [Suspect]
     Active Substance: INFLIXIMAB-DYYB
     Dosage: 300 MG, 1/WEEK
     Route: 042
     Dates: start: 20180301
  6. PROBIOTIC                          /06395501/ [Concomitant]
     Active Substance: BIFIDOBACTERIUM ANIMALIS LACTIS
     Dosage: UNK, DAILY
     Route: 065
  7. INFLECTRA [Suspect]
     Active Substance: INFLIXIMAB-DYYB
     Dosage: 400 MG, CYCLIC (EVERY 8 WEEKS)
     Route: 042
     Dates: start: 20180221
  8. INFLECTRA [Suspect]
     Active Substance: INFLIXIMAB-DYYB
     Dosage: 700 MG  THEN EVERY 8 WEEKS
     Route: 042
     Dates: start: 20180418
  9. TIAZAC [Concomitant]
     Active Substance: DILTIAZEM HYDROCHLORIDE
     Dosage: 240 MG, DAILY
     Route: 065
  10. DOCUSATE SODIUM. [Concomitant]
     Active Substance: DOCUSATE SODIUM
     Dosage: 200 MG, DAILY
     Route: 065
     Dates: start: 2017
  11. HYDROCORTISONE. [Concomitant]
     Active Substance: HYDROCORTISONE
     Dosage: UNK
     Dates: start: 20180613
  12. INFLECTRA [Suspect]
     Active Substance: INFLIXIMAB-DYYB
     Dosage: 400 MG, CYCLIC (EVERY 0, 2, 6 WEEKS, THEN EVERY 8 WEEKS)
     Route: 042
     Dates: start: 20171228
  13. INFLECTRA [Suspect]
     Active Substance: INFLIXIMAB-DYYB
     Indication: CROHN^S DISEASE
     Dosage: 400 MG, CYCLIC (EVERY 0, 2, 6 WEEKS, THEN EVERY 8 WEEKS)
     Route: 042
     Dates: start: 20170922
  14. INFLECTRA [Suspect]
     Active Substance: INFLIXIMAB-DYYB
     Dosage: 700 MG  THEN EVERY 8 WEEKS
     Route: 042
     Dates: start: 20180613, end: 20180621
  15. CIALIS [Concomitant]
     Active Substance: TADALAFIL
     Dosage: 5 MG, DAILY
     Route: 065
     Dates: start: 2013
  16. PROCTOFOAM                         /00622802/ [Concomitant]
     Dosage: AS NEEDED (UP TO 3 TIMES A DAY)
     Route: 065
     Dates: start: 2017

REACTIONS (10)
  - Off label use [Unknown]
  - Pancreatitis [Unknown]
  - Asthenia [Unknown]
  - Blood pressure fluctuation [Unknown]
  - Drug level decreased [Not Recovered/Not Resolved]
  - Heart rate irregular [Unknown]
  - Drug effect incomplete [Unknown]
  - Incorrect dose administered [Unknown]
  - Nausea [Unknown]
  - Pruritus [Recovered/Resolved]

NARRATIVE: CASE EVENT DATE: 201710
